FAERS Safety Report 25280211 (Version 2)
Quarter: 2025Q3

REPORT INFORMATION
  Report Type: Spontaneous
  Country: US (occurrence: US)
  Receive Date: 20250507
  Receipt Date: 20250816
  Transmission Date: 20251020
  Serious: No
  Sender: ALEXION PHARMACEUTICALS
  Company Number: US-AstraZeneca-CH-00860870A

PATIENT
  Sex: Female

DRUGS (1)
  1. TEZSPIRE [Suspect]
     Active Substance: TEZEPELUMAB-EKKO
     Route: 065
     Dates: start: 202503, end: 202504

REACTIONS (6)
  - Back pain [Unknown]
  - Peripheral swelling [Unknown]
  - Pain [Unknown]
  - Dizziness [Unknown]
  - Illness [Unknown]
  - Heart rate increased [Unknown]
